FAERS Safety Report 5590767-1 (Version None)
Quarter: 2008Q1

REPORT INFORMATION
  Report Type: 
  Country: None (occurrence: None)
  Receive Date: 20080114
  Receipt Date: 20080107
  Transmission Date: 20080703
  Serious: Yes (Hospitalization, Other)
  Sender: FDA-Public Use
  Company Number: AT-PFIZER INC-2008001894

PATIENT
  Sex: Male

DRUGS (1)
  1. DALACIN [Suspect]
     Dates: start: 20060101, end: 20060101

REACTIONS (1)
  - GASTROINTESTINAL HAEMORRHAGE [None]
